FAERS Safety Report 9950925 (Version 2)
Quarter: 2014Q1

REPORT INFORMATION
  Report Type: Report from Study
  Country: US (occurrence: US)
  Receive Date: 20140304
  Receipt Date: 20140304
  Transmission Date: 20141002
  Serious: No
  Sender: FDA-Public Use
  Company Number: US-ABBVIE-12P-163-1018382-00

PATIENT
  Age: 24 Year
  Sex: Female

DRUGS (10)
  1. HUMIRA [Suspect]
     Indication: CROHN^S DISEASE
     Route: 058
     Dates: start: 20120926, end: 20121219
  2. ASACOL [Concomitant]
     Indication: CROHN^S DISEASE
  3. PROBIOTIC [Concomitant]
     Indication: PRODUCT USED FOR UNKNOWN INDICATION
     Dosage: 1 TABLET DAILY
  4. MULTIVITAMIN [Concomitant]
     Indication: VITAMIN SUPPLEMENTATION
  5. B12 [Concomitant]
     Indication: VITAMIN B12
     Dosage: DAILY
  6. PRILOSEC [Concomitant]
     Indication: ANTACID THERAPY
     Dosage: 40 MG DAILY
  7. DESIPRAMINE [Concomitant]
     Indication: STRESS
     Dosage: 10 MG DAILY
  8. ZOFRAN [Concomitant]
     Indication: NAUSEA
  9. PREDNISONE [Concomitant]
     Indication: CROHN^S DISEASE
     Dosage: 10 MG DAILY
  10. OVRAL-LO [Concomitant]
     Indication: CONTRACEPTION
     Dosage: DAILY

REACTIONS (7)
  - Faeces discoloured [Not Recovered/Not Resolved]
  - Drug ineffective [Not Recovered/Not Resolved]
  - Abdominal pain upper [Not Recovered/Not Resolved]
  - Nausea [Not Recovered/Not Resolved]
  - Vomiting [Not Recovered/Not Resolved]
  - Injection site reaction [Recovered/Resolved]
  - Stress [Not Recovered/Not Resolved]
